FAERS Safety Report 10069711 (Version 2)
Quarter: 2014Q2

REPORT INFORMATION
  Report Type: Spontaneous
  Country: US (occurrence: US)
  Receive Date: 20140410
  Receipt Date: 20140501
  Transmission Date: 20141212
  Serious: No
  Sender: FDA-Public Use
  Company Number: US-009507513-1404USA003631

PATIENT
  Sex: Female

DRUGS (1)
  1. ZIOPTAN [Suspect]
     Indication: GLAUCOMA
     Dosage: ONE DROP IN EACH EYE AT BEDTIME (1 GTT QHS OU)
     Route: 047
     Dates: start: 20130415

REACTIONS (1)
  - Urinary tract infection [Not Recovered/Not Resolved]
